FAERS Safety Report 23036301 (Version 1)
Quarter: 2023Q4

REPORT INFORMATION
  Report Type: Spontaneous
  Country: BR (occurrence: BR)
  Receive Date: 20231006
  Receipt Date: 20231006
  Transmission Date: 20240109
  Serious: Yes (Other)
  Sender: FDA-Public Use
  Company Number: BR-NOVOPROD-1122083

PATIENT
  Age: 62 Year
  Sex: Female
  Weight: 89.6 kg

DRUGS (19)
  1. OZEMPIC [Suspect]
     Active Substance: SEMAGLUTIDE
     Indication: Type 2 diabetes mellitus
     Dosage: 1 MG, QW
     Dates: start: 2023
  2. LEVAMLODIPINE [Concomitant]
     Active Substance: LEVAMLODIPINE
     Indication: Hypertension
     Dosage: 2.5 MG
  3. ATENOLOL [Concomitant]
     Active Substance: ATENOLOL
     Indication: Hypertension
     Dosage: 2 TABLETS OF 25 MG (FREQUENCY NOT SPECIFIED)
  4. LOSARTAN [Concomitant]
     Active Substance: LOSARTAN
     Indication: Hypertension
     Dosage: 100 MG 2 TABLETS OF 50 MG (FREQUENCY NOT SPECIFIED)
  5. INDAPAMIDE [Concomitant]
     Active Substance: INDAPAMIDE
     Indication: Hypertension
     Dosage: NOT REPORTED
  6. ASCORBIC ACID\CRANBERRY [Concomitant]
     Active Substance: ASCORBIC ACID\CRANBERRY
     Indication: Supplementation therapy
     Dosage: ONCE A DAY
  7. ASPIRIN [Concomitant]
     Active Substance: ASPIRIN
     Indication: Product used for unknown indication
     Dosage: NOT REPORTED
  8. VITAMIN C [Concomitant]
     Active Substance: ASCORBIC ACID
     Indication: Vitamin supplementation
     Dosage: ONCE A DAY
  9. DULOXETINE [Concomitant]
     Active Substance: DULOXETINE
     Indication: Carpal tunnel syndrome
     Dosage: NOT REPORTED
  10. INVOKANA [Concomitant]
     Active Substance: CANAGLIFLOZIN
     Indication: Type 2 diabetes mellitus
     Dosage: NOT REPORTED
  11. FOLIC ACID [Concomitant]
     Active Substance: FOLIC ACID
     Indication: Elliptocytosis hereditary
     Dosage: IN USE FOR A LONG TIME
  12. ASPIRIN\DIHYDROXYALUMINUM AMINOACETATE ANHYDROUS\MAGNESIUM CARBONATE [Concomitant]
     Active Substance: ASPIRIN\DIHYDROXYALUMINUM AMINOACETATE ANHYDROUS\MAGNESIUM CARBONATE
     Indication: Product used for unknown indication
     Dosage: NOT REPORTED
  13. ISOFLAVON [Concomitant]
     Indication: Supplementation therapy
     Dosage: NOT REPORTED
  14. NPH INSULIN [Concomitant]
     Active Substance: INSULIN BEEF
     Indication: Type 2 diabetes mellitus
     Dosage: 17 IU AND THEN 12 IU AT NIGHT
  15. PREGABALIN [Concomitant]
     Active Substance: PREGABALIN
     Indication: Neuropathy peripheral
     Dosage: 75 MG
  16. METFORMIN HYDROCHLORIDE [Concomitant]
     Active Substance: METFORMIN HYDROCHLORIDE
     Indication: Type 2 diabetes mellitus
     Dosage: 500 MG, TID
  17. ROSUVASTATIN CALCIUM [Concomitant]
     Active Substance: ROSUVASTATIN CALCIUM
     Indication: Blood cholesterol abnormal
     Dosage: NOT REPORTED
  18. DOCONEXENT\ICOSAPENT\TOCOPHEROL [Concomitant]
     Active Substance: DOCONEXENT\ICOSAPENT\TOCOPHEROL
     Indication: Supplementation therapy
     Dosage: 2 CAPSULES PER DAY
  19. CLONIDINE [Concomitant]
     Active Substance: CLONIDINE
     Indication: Hypertension
     Dosage: NOT REPORTED

REACTIONS (2)
  - Cataract operation [Recovering/Resolving]
  - Cataract operation [Recovering/Resolving]

NARRATIVE: CASE EVENT DATE: 20230829
